FAERS Safety Report 10190130 (Version 1)
Quarter: 2014Q2

REPORT INFORMATION
  Report Type: Spontaneous
  Country: FR (occurrence: FR)
  Receive Date: 20140522
  Receipt Date: 20140522
  Transmission Date: 20141212
  Serious: Yes (Other)
  Sender: FDA-Public Use
  Company Number: FR-PFIZER INC-2014134391

PATIENT
  Age: 34 Year
  Sex: Female

DRUGS (1)
  1. LYRICA [Suspect]
     Dosage: 25 MG, UNK
     Dates: start: 201405, end: 201405

REACTIONS (4)
  - Pharyngeal oedema [Unknown]
  - Swelling face [Unknown]
  - Lip swelling [Unknown]
  - Skin irritation [Unknown]
